FAERS Safety Report 17131007 (Version 1)
Quarter: 2019Q4

REPORT INFORMATION
  Report Type: Spontaneous
  Country: CN (occurrence: CN)
  Receive Date: 20191209
  Receipt Date: 20191209
  Transmission Date: 20200122
  Serious: Yes (Other)
  Sender: FDA-Public Use
  Company Number: CN-B.I. PHARMACEUTICALS,INC./RIDGEFIELD-2019-BI-118757

PATIENT
  Age: 85 Year
  Sex: Female

DRUGS (1)
  1. PRADAXA [Suspect]
     Active Substance: DABIGATRAN ETEXILATE MESYLATE
     Indication: PRODUCT USED FOR UNKNOWN INDICATION
     Route: 065
     Dates: start: 2016

REACTIONS (14)
  - Activated partial thromboplastin time shortened [Unknown]
  - Prothrombin time prolonged [Unknown]
  - Urine analysis abnormal [Unknown]
  - White blood cell count increased [Unknown]
  - International normalised ratio increased [Unknown]
  - Mental disorder [Unknown]
  - Type V hyperlipidaemia [Unknown]
  - Activated partial thromboplastin time prolonged [Unknown]
  - Thrombin time abnormal [Unknown]
  - Blood creatinine abnormal [Unknown]
  - Lymphocyte count increased [Unknown]
  - Hypoglycaemia [Unknown]
  - Blood fibrinogen decreased [Unknown]
  - Arteriosclerosis coronary artery [Unknown]

NARRATIVE: CASE EVENT DATE: 2016
